FAERS Safety Report 21257869 (Version 1)
Quarter: 2022Q3

REPORT INFORMATION
  Report Type: Spontaneous
  Country: US (occurrence: US)
  Receive Date: 20220826
  Receipt Date: 20220826
  Transmission Date: 20221027
  Serious: No
  Sender: FDA-Public Use
  Company Number: US-BRISTOL-MYERS SQUIBB COMPANY-2022-096518

PATIENT
  Age: 54 Year
  Sex: Male
  Weight: 97.522 kg

DRUGS (2)
  1. REVLIMID [Suspect]
     Active Substance: LENALIDOMIDE
     Indication: Plasma protein metabolism disorder
     Dosage: FREQ: 1-21 DAYS 28 DAYS
     Route: 048
     Dates: start: 20210816
  2. REVLIMID [Suspect]
     Active Substance: LENALIDOMIDE
     Indication: Necrotising colitis

REACTIONS (2)
  - Tremor [Not Recovered/Not Resolved]
  - Intentional product use issue [Unknown]

NARRATIVE: CASE EVENT DATE: 20220101
